FAERS Safety Report 6322852-0 (Version None)
Quarter: 2009Q3

REPORT INFORMATION
  Report Type: 
  Country: None (occurrence: None)
  Receive Date: 20090824
  Receipt Date: 20090817
  Transmission Date: 20100115
  Serious: Yes (Other)
  Sender: FDA-Public Use
  Company Number: PHHY2009US35018

PATIENT
  Age: 57 Year
  Sex: Female

DRUGS (9)
  1. ZOMETA [Suspect]
     Indication: BREAST CANCER
  2. ZOMETA [Suspect]
     Indication: METASTASES TO BONE
  3. HUMALOG [Concomitant]
  4. GLYBURIDE [Concomitant]
  5. LISINOPRIL [Concomitant]
  6. HYDROCHLOROTHIAZIDE [Concomitant]
  7. LIPITOR [Concomitant]
  8. DEXAMETHASONE [Concomitant]
  9. CISPLATIN W/TAXOL [Concomitant]

REACTIONS (6)
  - BONE DISORDER [None]
  - IMPAIRED HEALING [None]
  - OSTEONECROSIS [None]
  - PAIN IN JAW [None]
  - SKIN LESION [None]
  - TOOTH EXTRACTION [None]
